FAERS Safety Report 9846234 (Version 8)
Quarter: 2015Q1

REPORT INFORMATION
  Report Type: Report from Study
  Country: US (occurrence: US)
  Receive Date: 20140127
  Receipt Date: 20150220
  Transmission Date: 20150721
  Serious: Yes (Hospitalization, Congenital Anomaly, Other)
  Sender: FDA-Public Use
  Company Number: US-SA-2013SA134911

PATIENT
  Age: 62 Year
  Sex: Female

DRUGS (11)
  1. OMEPRAZOLE. [Concomitant]
     Active Substance: OMEPRAZOLE
     Indication: GASTRIC DISORDER
  2. PREDNISONE. [Concomitant]
     Active Substance: PREDNISONE
     Indication: HYPERSENSITIVITY
     Route: 048
     Dates: start: 20130819
  3. ALBUTEROL SULFATE. [Concomitant]
     Active Substance: ALBUTEROL SULFATE
     Indication: ASTHMA
     Route: 055
     Dates: start: 20121212
  4. LAMOTRIGINE. [Concomitant]
     Active Substance: LAMOTRIGINE
     Indication: NEURALGIA
  5. POTASSIUM [Concomitant]
     Active Substance: POTASSIUM
     Indication: NUTRITIONAL SUPPLEMENTATION
     Route: 048
     Dates: start: 20090101
  6. ADVAIR DISKUS [Concomitant]
     Active Substance: FLUTICASONE PROPIONATE\SALMETEROL XINAFOATE
     Indication: ASTHMA
     Dosage: DOSE: 250-50 MCG
     Route: 055
     Dates: start: 20121212
  7. DILTIAZEM [Concomitant]
     Active Substance: DILTIAZEM
     Indication: HYPERTENSION
     Route: 048
     Dates: start: 20030101
  8. ASPIRIN. [Concomitant]
     Active Substance: ASPIRIN
     Indication: PROPHYLAXIS
     Route: 048
     Dates: start: 20030101
  9. HYDROCHLOROTHIAZIDE/TRIAMTERENE [Concomitant]
     Indication: DIURETIC THERAPY
     Dosage: DOSE: 37.5-25 MG
     Route: 048
     Dates: start: 20050101
  10. AUBAGIO [Suspect]
     Active Substance: TERIFLUNOMIDE
     Indication: MULTIPLE SCLEROSIS
     Route: 048
     Dates: start: 20130806
  11. SIMVASTATIN. [Concomitant]
     Active Substance: SIMVASTATIN
     Indication: BLOOD CHOLESTEROL INCREASED
     Route: 048
     Dates: start: 20110101

REACTIONS (16)
  - Fall [Unknown]
  - Laryngeal inflammation [Unknown]
  - Weight decreased [Unknown]
  - Nausea [Recovered/Resolved]
  - Paraesthesia [Unknown]
  - Nasopharyngitis [Recovering/Resolving]
  - Ankle fracture [Unknown]
  - Pain [Unknown]
  - Alopecia [Not Recovered/Not Resolved]
  - Bronchitis [Recovering/Resolving]
  - Vomiting [Recovered/Resolved]
  - Multiple sclerosis relapse [Unknown]
  - Drug dose omission [Unknown]
  - Abdominal pain upper [Unknown]
  - Influenza [Unknown]
  - Congenital intestinal malformation [Unknown]

NARRATIVE: CASE EVENT DATE: 2013
